FAERS Safety Report 7488615-8 (Version None)
Quarter: 2011Q2

REPORT INFORMATION
  Report Type: 
  Country: None (occurrence: None)
  Receive Date: 20110518
  Receipt Date: 20110510
  Transmission Date: 20111010
  Serious: Yes (Death, Hospitalization)
  Sender: FDA-Public Use
  Company Number: A0790242A

PATIENT
  Age: 59 Year
  Sex: Male
  Weight: 88.2 kg

DRUGS (11)
  1. AZATHIOPRINE [Concomitant]
  2. OMEPRAZOLE [Concomitant]
  3. CITALOPRAM [Concomitant]
  4. HYDROCHLOROTHIAZIDE [Concomitant]
  5. GABAPENTIN [Concomitant]
  6. SIMVASTATIN [Concomitant]
  7. INSULIN [Concomitant]
  8. AVANDIA [Suspect]
     Dosage: 8MG PER DAY
     Route: 048
     Dates: start: 20050101, end: 20070914
  9. PREDNISONE [Concomitant]
  10. LOSARTAN [Concomitant]
  11. CYCLOSPORINE [Concomitant]

REACTIONS (2)
  - CARDIAC FAILURE CONGESTIVE [None]
  - MYOCARDIAL INFARCTION [None]
